FAERS Safety Report 10659453 (Version 1)
Quarter: 2014Q4

REPORT INFORMATION
  Report Type: Spontaneous
  Country: US (occurrence: None)
  Receive Date: 20141205
  Receipt Date: 20141205
  Transmission Date: 20150529
  Serious: No
  Sender: FDA-Public Use
  Company Number: USA-2014104098

PATIENT
  Age: 68 Year
  Sex: Female

DRUGS (9)
  1. CHILDREN^S ASPRIN (ACETYLSALICYLIC ACID) [Concomitant]
  2. DEXAMETHASONE. [Concomitant]
     Active Substance: DEXAMETHASONE
  3. OXYCODONE HCL (OXCODONE HYDROCHLORIDE) [Concomitant]
  4. DICLOFENAC SODIUM. [Concomitant]
     Active Substance: DICLOFENAC SODIUM
  5. STOOL SOFTENER (DOCUSATE SODIUM) [Concomitant]
     Active Substance: DOCUSATE SODIUM
  6. POMALYST [Suspect]
     Active Substance: POMALIDOMIDE
     Indication: PLASMA CELL MYELOMA
     Dosage: 4 MG , 21 IN 21 D, PO
     Route: 048
     Dates: start: 20141007
  7. TRAMADOL HCL ER (TRAMADOL HYDROCHLORIDE) [Concomitant]
  8. VELCADE [Concomitant]
     Active Substance: BORTEZOMIB
  9. ZOMETA [Concomitant]
     Active Substance: ZOLEDRONIC ACID

REACTIONS (1)
  - Swelling face [None]

NARRATIVE: CASE EVENT DATE: 20141012
